FAERS Safety Report 9352713 (Version 1)
Quarter: 2013Q2

REPORT INFORMATION
  Report Type: Spontaneous
  Country: TR (occurrence: TR)
  Receive Date: 20130618
  Receipt Date: 20130618
  Transmission Date: 20140414
  Serious: Yes (Life-Threatening, Hospitalization, Other)
  Sender: FDA-Public Use
  Company Number: TR-PFIZER INC-2006136204

PATIENT
  Age: 7 Day
  Sex: Male
  Weight: 1.1 kg

DRUGS (2)
  1. IBUPROFEN [Suspect]
     Indication: PATENT DUCTUS ARTERIOSUS
     Dosage: 11 MG, ONCE
     Dates: start: 20030629, end: 20030629
  2. IBUPROFEN [Suspect]
     Indication: PROPHYLAXIS
     Dosage: 5.5 MG, 1X/DAY
     Dates: start: 20030630, end: 20030701

REACTIONS (1)
  - Intestinal perforation [Recovered/Resolved]
